FAERS Safety Report 23307695 (Version 3)
Quarter: 2024Q2

REPORT INFORMATION
  Report Type: Spontaneous
  Country: US (occurrence: US)
  Receive Date: 20231218
  Receipt Date: 20240613
  Transmission Date: 20240715
  Serious: Yes (Other)
  Sender: FDA-Public Use
  Company Number: US-JNJFOC-20231242432

PATIENT
  Age: 30 Year
  Sex: Female
  Weight: 96.702 kg

DRUGS (6)
  1. REMICADE [Suspect]
     Active Substance: INFLIXIMAB
     Indication: Inflammatory bowel disease
     Route: 065
  2. SERTRALINE [Concomitant]
     Active Substance: SERTRALINE HYDROCHLORIDE
     Dates: start: 20230820
  3. PNV [Concomitant]
     Dates: start: 20230906
  4. ASPIRIN [Concomitant]
     Active Substance: ASPIRIN
  5. ZOFRAN [Concomitant]
     Active Substance: ONDANSETRON HYDROCHLORIDE
     Dates: start: 20240108
  6. AMOXICILLIN [Concomitant]
     Active Substance: AMOXICILLIN
     Dates: start: 20240124

REACTIONS (3)
  - Gestational diabetes [Unknown]
  - Gestational hypertension [Unknown]
  - Paternal exposure during pregnancy [Recovered/Resolved]
